FAERS Safety Report 20525398 (Version 1)
Quarter: 2022Q1

REPORT INFORMATION
  Report Type: Spontaneous
  Country: FR (occurrence: FR)
  Receive Date: 20220228
  Receipt Date: 20220228
  Transmission Date: 20220423
  Serious: Yes (Congenital Anomaly, Other)
  Sender: FDA-Public Use
  Company Number: FR-ABBVIE-22K-056-4291304-00

PATIENT
  Sex: Female
  Weight: 3.5 kg

DRUGS (1)
  1. VALPROATE SODIUM [Suspect]
     Active Substance: VALPROATE SODIUM
     Indication: Maternal exposure timing unspecified
     Route: 064

REACTIONS (53)
  - Immunodeficiency congenital [Unknown]
  - Speech disorder developmental [Unknown]
  - Abdominal fat apron [Unknown]
  - Anorectal disorder [Unknown]
  - Anal fissure [Unknown]
  - Infantile genetic agranulocytosis [Unknown]
  - Developmental coordination disorder [Unknown]
  - Fine motor skill dysfunction [Unknown]
  - Leukopenia neonatal [Unknown]
  - Respiratory tract infection [Unknown]
  - Thrombosis [Unknown]
  - Balance disorder [Unknown]
  - Dyslexia [Unknown]
  - Dyspraxia [Unknown]
  - Memory impairment [Unknown]
  - Intellectual disability [Unknown]
  - Mental disorder [Unknown]
  - Learning disorder [Unknown]
  - Lichen sclerosus [Unknown]
  - Dysgraphia [Unknown]
  - Gastrooesophageal reflux disease [Unknown]
  - Dyscalculia [Unknown]
  - Impaired reasoning [Unknown]
  - Disturbance in attention [Unknown]
  - Oesophagitis [Unknown]
  - Nasopharyngitis [Unknown]
  - Deafness bilateral [Unknown]
  - Tracheitis [Unknown]
  - Hypogammaglobulinaemia [Unknown]
  - Neuropsychiatric syndrome [Unknown]
  - Vaginal infection [Unknown]
  - Constipation [Unknown]
  - Astigmatism [Unknown]
  - Nightmare [Unknown]
  - Anxiety [Unknown]
  - Sever^s disease [Unknown]
  - Hypercholesterolaemia [Unknown]
  - Blood immunoglobulin M decreased [Unknown]
  - Strabismus [Unknown]
  - Insomnia [Unknown]
  - Asthma [Unknown]
  - Bronchitis [Unknown]
  - Ear, nose and throat infection [Unknown]
  - Bronchitis [Unknown]
  - Hypermetropia [Unknown]
  - Fungal infection [Unknown]
  - Weight increased [Unknown]
  - Abdominal pain [Unknown]
  - Headache [Unknown]
  - Hallucination, visual [Unknown]
  - Enuresis [Unknown]
  - Obesity [Unknown]
  - Foetal exposure during pregnancy [Unknown]
